FAERS Safety Report 7575381-0 (Version None)
Quarter: 2011Q2

REPORT INFORMATION
  Report Type: 
  Country: None (occurrence: None)
  Receive Date: 20110627
  Receipt Date: 20110621
  Transmission Date: 20111010
  Serious: Yes (Other)
  Sender: FDA-Public Use
  Company Number: BR-ABBOTT-11P-020-0734333-00

PATIENT
  Sex: Female
  Weight: 48 kg

DRUGS (2)
  1. HUMIRA [Suspect]
     Indication: RHEUMATOID ARTHRITIS
     Dates: start: 20090101
  2. PREDNISONE [Concomitant]
     Indication: PAIN
     Route: 048
     Dates: start: 20010101

REACTIONS (2)
  - ANKLE FRACTURE [None]
  - UNEVALUABLE EVENT [None]
